FAERS Safety Report 17843660 (Version 1)
Quarter: 2020Q2

REPORT INFORMATION
  Report Type: Spontaneous
  Country: CN (occurrence: CN)
  Receive Date: 20200531
  Receipt Date: 20200531
  Transmission Date: 20200714
  Serious: Yes (Other)
  Sender: FDA-Public Use
  Company Number: CN-ROCHE-2381130

PATIENT
  Age: 52 Year
  Sex: Female

DRUGS (13)
  1. BEVACIZUMAB. [Suspect]
     Active Substance: BEVACIZUMAB
     Indication: RECTAL ADENOCARCINOMA
     Route: 065
     Dates: start: 20190105, end: 20190415
  2. OXALIPLATIN. [Suspect]
     Active Substance: OXALIPLATIN
     Route: 065
     Dates: start: 20160922, end: 20161222
  3. CALCIUM FOLINATE [Suspect]
     Active Substance: LEUCOVORIN CALCIUM
     Indication: RECTAL ADENOCARCINOMA
     Route: 065
     Dates: start: 20190105, end: 20190415
  4. XELODA [Suspect]
     Active Substance: CAPECITABINE
     Indication: RECTAL ADENOCARCINOMA
     Route: 048
     Dates: start: 20160716
  5. XELODA [Suspect]
     Active Substance: CAPECITABINE
     Dosage: MONOTHERAPY CHEMOTHERAPY
     Route: 048
     Dates: start: 2018
  6. XELODA [Suspect]
     Active Substance: CAPECITABINE
     Route: 065
     Dates: start: 20181010, end: 20181117
  7. OXALIPLATIN. [Suspect]
     Active Substance: OXALIPLATIN
     Route: 065
     Dates: start: 20190105, end: 20190415
  8. 5-FLUOROURACIL [FLUOROURACIL] [Suspect]
     Active Substance: FLUOROURACIL
     Indication: RECTAL ADENOCARCINOMA
     Route: 065
     Dates: start: 20190105, end: 20190415
  9. XELODA [Suspect]
     Active Substance: CAPECITABINE
     Dosage: MONOTHERAPY CHEMOTHERAPY
     Route: 048
     Dates: start: 2016
  10. XELODA [Suspect]
     Active Substance: CAPECITABINE
     Route: 048
     Dates: start: 20160922, end: 20161222
  11. OXALIPLATIN. [Suspect]
     Active Substance: OXALIPLATIN
     Route: 065
     Dates: start: 20170718
  12. XELODA [Suspect]
     Active Substance: CAPECITABINE
     Route: 048
     Dates: start: 20170718
  13. OXALIPLATIN. [Suspect]
     Active Substance: OXALIPLATIN
     Indication: RECTAL ADENOCARCINOMA
     Route: 065
     Dates: start: 20160716

REACTIONS (9)
  - Anastomotic stenosis [Unknown]
  - Bone marrow failure [Recovering/Resolving]
  - Neurotoxicity [Unknown]
  - White blood cell count decreased [Unknown]
  - Rash [Unknown]
  - Colitis [Unknown]
  - Gastroenteritis radiation [Recovering/Resolving]
  - Gastrointestinal disorder [Unknown]
  - Granulocyte count decreased [Unknown]

NARRATIVE: CASE EVENT DATE: 2016
